FAERS Safety Report 19895595 (Version 1)
Quarter: 2021Q3

REPORT INFORMATION
  Report Type: Spontaneous
  Country: US (occurrence: US)
  Receive Date: 20210929
  Receipt Date: 20210929
  Transmission Date: 20211014
  Serious: No
  Sender: FDA-Public Use
  Company Number: None

PATIENT
  Age: 31 Year
  Sex: Male
  Weight: 83.25 kg

DRUGS (4)
  1. STELARA [Suspect]
     Active Substance: USTEKINUMAB
     Indication: CROHN^S DISEASE
  2. LEVOTHYROXINE. [Concomitant]
     Active Substance: LEVOTHYROXINE
  3. USTEKINUMAB [Concomitant]
     Active Substance: USTEKINUMAB
  4. CENTRUM [Concomitant]
     Active Substance: VITAMINS

REACTIONS (6)
  - Nonspecific reaction [None]
  - Pruritus [None]
  - Drug ineffective [None]
  - Allergy to arthropod bite [None]
  - Arthropod sting [None]
  - Cellulitis [None]

NARRATIVE: CASE EVENT DATE: 20210926
